FAERS Safety Report 9235013 (Version 1)
Quarter: 2013Q2

REPORT INFORMATION
  Report Type: Report from Study
  Country: US (occurrence: US)
  Receive Date: 20130416
  Receipt Date: 20130416
  Transmission Date: 20140414
  Serious: Yes (Hospitalization)
  Sender: FDA-Public Use
  Company Number: US-US-EMD SERONO, INC.-7204885

PATIENT
  Age: 42 Year
  Sex: Male

DRUGS (1)
  1. REBIF [Suspect]
     Indication: MULTIPLE SCLEROSIS
     Route: 058
     Dates: start: 20130208

REACTIONS (6)
  - Nephrolithiasis [Recovering/Resolving]
  - Kidney infection [Unknown]
  - Cystitis [Recovering/Resolving]
  - Gastrointestinal inflammation [Unknown]
  - Skin ulcer [Unknown]
  - Blood pressure decreased [Not Recovered/Not Resolved]
